FAERS Safety Report 6389565-0 (Version None)
Quarter: 2009Q4

REPORT INFORMATION
  Report Type: 
  Country: None (occurrence: None)
  Receive Date: 20091006
  Receipt Date: 20090925
  Transmission Date: 20100525
  Serious: Yes (Hospitalization)
  Sender: FDA-Public Use
  Company Number: FR-AMGEN-US367031

PATIENT
  Sex: Male

DRUGS (4)
  1. ENBREL [Suspect]
     Indication: ANKYLOSING SPONDYLITIS
     Dosage: UNKNOWN
     Route: 058
     Dates: start: 20080901, end: 20090101
  2. HUMIRA [Suspect]
     Indication: ANKYLOSING SPONDYLITIS
     Dosage: UNKNOWN
     Route: 058
     Dates: start: 20090201, end: 20090301
  3. PREVISCAN [Concomitant]
     Indication: ATRIAL FIBRILLATION
     Dosage: UNKNOWN
     Route: 048
  4. SOTALEX [Concomitant]
     Indication: ATRIAL FIBRILLATION
     Dosage: UNKNOWN

REACTIONS (4)
  - GLIOBLASTOMA [None]
  - GUILLAIN-BARRE SYNDROME [None]
  - LYME DISEASE [None]
  - STAPHYLOCOCCAL SEPSIS [None]
